FAERS Safety Report 11067800 (Version 1)
Quarter: 2015Q2

REPORT INFORMATION
  Report Type: Spontaneous
  Country: US (occurrence: None)
  Receive Date: 20150424
  Receipt Date: 20150424
  Transmission Date: 20150821
  Serious: Yes (Hospitalization)
  Sender: FDA-Public Use
  Company Number: None

PATIENT
  Age: 63 Year
  Sex: Female
  Weight: 84 kg

DRUGS (3)
  1. METFORMIN HYDROCHLORIDE. [Suspect]
     Active Substance: METFORMIN HYDROCHLORIDE
     Dates: end: 20150416
  2. CARBOPLATIN. [Suspect]
     Active Substance: CARBOPLATIN
     Indication: DEVICE RELATED INFECTION
     Dates: end: 20150407
  3. TAXOL [Suspect]
     Active Substance: PACLITAXEL
     Dates: end: 20150407

REACTIONS (1)
  - Cellulitis [None]

NARRATIVE: CASE EVENT DATE: 20150416
